FAERS Safety Report 6557884-0 (Version None)
Quarter: 2010Q1

REPORT INFORMATION
  Report Type: 
  Country: None (occurrence: None)
  Receive Date: 20100125
  Receipt Date: 20100102
  Transmission Date: 20100710
  Serious: No
  Sender: FDA-Public Use
  Company Number: 2010-00002

PATIENT
  Age: 77 Year
  Sex: Female
  Weight: 86.1834 kg

DRUGS (6)
  1. COLD REMEDY PLUS LIQUI-LOZ [Suspect]
     Dosage: Q 3 HRS - 7 DOSES
     Dates: start: 20091231, end: 20100101
  2. TRIAMTERENE AND HYDROCHLOROTHIAZIDE [Concomitant]
  3. ENALAPRIL MALEATE [Concomitant]
  4. JANUVIA [Concomitant]
  5. MULTI-VITAMIN [Concomitant]
  6. VITAMIN C [Concomitant]

REACTIONS (1)
  - AGEUSIA [None]
